FAERS Safety Report 7541353-5 (Version None)
Quarter: 2011Q2

REPORT INFORMATION
  Report Type: 
  Country: None (occurrence: None)
  Receive Date: 20110613
  Receipt Date: 20110604
  Transmission Date: 20111010
  Serious: Yes (Other)
  Sender: FDA-Public Use
  Company Number: ES-PAR PHARMACEUTICAL, INC-2011SCPR003046

PATIENT

DRUGS (7)
  1. DEXAMETHASONE [Suspect]
     Indication: MULTIPLE MYELOMA
     Dosage: HIGH DOSE
     Route: 065
  2. DEXAMETHASONE [Suspect]
     Indication: DISEASE PROGRESSION
     Dosage: 40 MG/WEEK
     Route: 065
  3. ZOLEDRONIC ACID [Concomitant]
     Indication: MULTIPLE MYELOMA
     Dosage: 4 MG/MONTH
     Route: 065
  4. DEXAMETHASONE [Suspect]
     Dosage: 20 MG/WEEK
  5. LENALIDOMIDE [Suspect]
     Indication: MULTIPLE MYELOMA
     Dosage: 25 MG/DAY FOR 21 DAYS
     Route: 065
  6. ZOLEDRONIC ACID [Concomitant]
     Indication: DISEASE PROGRESSION
  7. LENALIDOMIDE [Suspect]
     Indication: DISEASE PROGRESSION
     Dosage: 15 MG/DAY
     Route: 065

REACTIONS (7)
  - ASTHENIA [None]
  - THROMBOCYTOPENIA [None]
  - ANAEMIA [None]
  - RESPIRATORY TRACT INFECTION [None]
  - HYPERGLYCAEMIA [None]
  - TOXICITY TO VARIOUS AGENTS [None]
  - MYOPATHY [None]
